FAERS Safety Report 9896134 (Version 1)
Quarter: 2014Q1

REPORT INFORMATION
  Report Type: Spontaneous
  Country: US (occurrence: US)
  Receive Date: 20140213
  Receipt Date: 20140213
  Transmission Date: 20141002
  Serious: No
  Sender: FDA-Public Use
  Company Number: US-BRISTOL-MYERS SQUIBB COMPANY-19724129

PATIENT
  Age: 55 Year
  Sex: Female

DRUGS (16)
  1. ORENCIA FOR INJ [Suspect]
  2. METHOTREXATE [Concomitant]
  3. PLAQUENIL [Concomitant]
  4. POTASSIUM [Concomitant]
  5. MAGNESIUM [Concomitant]
  6. ALLOPURINOL [Concomitant]
  7. LOSARTAN [Concomitant]
  8. DEPAMIDE [Concomitant]
  9. LAMICTAL [Concomitant]
  10. LIPITOR [Concomitant]
  11. AMBIEN [Concomitant]
  12. FLOVENT [Concomitant]
  13. FLONASE [Concomitant]
  14. PREVACID [Concomitant]
  15. SUCRALFATE [Concomitant]
  16. ZANTAC [Concomitant]

REACTIONS (4)
  - Headache [Unknown]
  - Nasopharyngitis [Unknown]
  - Dizziness [Unknown]
  - Nausea [Unknown]
